FAERS Safety Report 24439757 (Version 1)
Quarter: 2024Q4

REPORT INFORMATION
  Report Type: Spontaneous
  Country: RO (occurrence: RO)
  Receive Date: 20241015
  Receipt Date: 20241015
  Transmission Date: 20250115
  Serious: Yes (Other)
  Sender: MERCK
  Company Number: RO-Merck-RO20241000005

PATIENT
  Age: 59 Year
  Sex: Male

DRUGS (3)
  1. PEMBROLIZUMAB [Suspect]
     Active Substance: PEMBROLIZUMAB
     Dosage: UNK
     Dates: start: 20210324
  2. PEMETREXED [Suspect]
     Active Substance: PEMETREXED
     Dosage: UNK
     Dates: start: 20210324
  3. CARBOPLATIN [Suspect]
     Active Substance: CARBOPLATIN
     Dosage: UNK
     Dates: start: 20210324

REACTIONS (5)
  - Pneumonia viral [Unknown]
  - Skin reaction [Unknown]
  - Anaemia [Unknown]
  - Hypertension [Unknown]
  - Rash [Unknown]

NARRATIVE: CASE EVENT DATE: 20210101
